FAERS Safety Report 10083884 (Version 1)
Quarter: 2014Q2

REPORT INFORMATION
  Report Type: Report from Study
  Country: DE (occurrence: DE)
  Receive Date: 20140417
  Receipt Date: 20140417
  Transmission Date: 20141212
  Serious: Yes (Hospitalization)
  Sender: FDA-Public Use
  Company Number: DE-US-EMD SERONO, INC.-7282418

PATIENT
  Sex: Male
  Weight: 86 kg

DRUGS (6)
  1. SAIZEN [Suspect]
     Indication: HYPOPITUITARISM
     Route: 058
     Dates: start: 20080530
  2. HYDROCORTISONE [Concomitant]
     Indication: ADRENOCORTICOTROPIC HORMONE DEFICIENCY
     Dosage: 10MG-5MG-6MG
     Route: 048
     Dates: start: 19991115
  3. MINIRIN                            /00361902/ [Concomitant]
     Indication: DIABETES INSIPIDUS
     Dates: start: 19991115
  4. MINIRIN                            /00361902/ [Concomitant]
     Indication: DIABETES INSIPIDUS
  5. DEPOT TESTOSTERONE [Concomitant]
     Indication: HYPOPITUITARISM
     Route: 030
     Dates: start: 20110921
  6. L-THYROXINE                        /00068001/ [Concomitant]
     Indication: BLOOD THYROID STIMULATING HORMONE DECREASED
     Dates: start: 19991115

REACTIONS (2)
  - Muscular weakness [Unknown]
  - Tremor [Unknown]
